FAERS Safety Report 8102942-2 (Version None)
Quarter: 2012Q1

REPORT INFORMATION
  Report Type: 
  Country: None (occurrence: None)
  Receive Date: 20120127
  Receipt Date: 20120116
  Transmission Date: 20120608
  Serious: Yes (Death, Hospitalization)
  Sender: FDA-Public Use
  Company Number: 2012POI057500036

PATIENT
  Age: 84 Year
  Sex: Female

DRUGS (1)
  1. MORPHINE SULFATE [Suspect]
     Dosage: PER ORAL
     Route: 048
     Dates: end: 20100101

REACTIONS (4)
  - MENTAL STATUS CHANGES [None]
  - PNEUMONIA ASPIRATION [None]
  - UNEVALUABLE EVENT [None]
  - TOXICITY TO VARIOUS AGENTS [None]
